FAERS Safety Report 10224427 (Version 2)
Quarter: 2014Q4

REPORT INFORMATION
  Report Type: Spontaneous
  Country: US (occurrence: None)
  Receive Date: 20140605
  Receipt Date: 20141006
  Transmission Date: 20150528
  Serious: Yes (Hospitalization)
  Sender: FDA-Public Use
  Company Number: UNT-2014-001198

PATIENT
  Age: 45 Year
  Sex: Male
  Weight: 79.4 kg

DRUGS (3)
  1. WARFARIN [Concomitant]
     Active Substance: WARFARIN
  2. REMODULIN [Suspect]
     Active Substance: TREPROSTINIL
     Indication: PULMONARY ARTERIAL HYPERTENSION
     Dosage: 0.164 UG/KG/MIN, CONTINUING, IV DRIP
     Route: 041
     Dates: start: 20061115
  3. ADCIRCA [Concomitant]
     Active Substance: TADALAFIL

REACTIONS (3)
  - Syncope [None]
  - Right ventricular failure [None]
  - Pulmonary hypertension [None]

NARRATIVE: CASE EVENT DATE: 20140521
